FAERS Safety Report 7111792-5 (Version None)
Quarter: 2010Q4

REPORT INFORMATION
  Report Type: 
  Country: None (occurrence: None)
  Receive Date: 20101119
  Receipt Date: 20100311
  Transmission Date: 20110411
  Serious: Yes (Other)
  Sender: FDA-Public Use
  Company Number: US-ASTRAZENECA-2010SE54889

PATIENT
  Age: 564 Month
  Sex: Male
  Weight: 108.9 kg

DRUGS (5)
  1. SEROQUEL [Suspect]
     Dosage: 50 TO 200 MG
     Route: 048
     Dates: start: 20061023
  2. EFFEXOR [Concomitant]
     Dosage: 45 TO 450 MG
     Dates: start: 20061023
  3. ABILIFY [Concomitant]
     Route: 048
     Dates: start: 20061023
  4. REMERON [Concomitant]
     Route: 048
     Dates: start: 20061023
  5. ALLOPURINOL [Concomitant]
     Dates: start: 20070410

REACTIONS (3)
  - ADRENAL INSUFFICIENCY [None]
  - HAEMOCHROMATOSIS [None]
  - TYPE 2 DIABETES MELLITUS [None]
